FAERS Safety Report 17516100 (Version 1)
Quarter: 2020Q1

REPORT INFORMATION
  Report Type: Spontaneous
  Country: US (occurrence: US)
  Receive Date: 20200309
  Receipt Date: 20200309
  Transmission Date: 20200409
  Serious: No
  Sender: FDA-Public Use
  Company Number: US-TARO-2019TAR00862

PATIENT
  Age: 87 Year
  Sex: Female

DRUGS (3)
  1. VOLTAREN [Suspect]
     Active Substance: DICLOFENAC SODIUM
     Route: 061
  2. ENALAPRIL MALEATE AND HYDROCHLOROTHIAZIDE TABLETS USP 5/12.5MG [Suspect]
     Active Substance: ENALAPRIL MALEATE\HYDROCHLOROTHIAZIDE
     Dosage: UNK
  3. ENALAPRIL [Suspect]
     Active Substance: ENALAPRIL

REACTIONS (5)
  - Hypotension [Recovered/Resolved]
  - Reaction to excipient [Unknown]
  - Blood pressure increased [Recovered/Resolved]
  - Muscle disorder [Not Recovered/Not Resolved]
  - Tinnitus [Unknown]
